FAERS Safety Report 25470280 (Version 3)
Quarter: 2025Q3

REPORT INFORMATION
  Report Type: Spontaneous
  Country: EU (occurrence: EU)
  Receive Date: 20250623
  Receipt Date: 20250813
  Transmission Date: 20251021
  Serious: Yes (Hospitalization)
  Sender: ALEXION PHARMACEUTICALS
  Company Number: None

PATIENT
  Age: 63 Year
  Sex: Female
  Weight: 65 kg

DRUGS (1)
  1. ESOMEPRAZOLE [Suspect]
     Active Substance: ESOMEPRAZOLE
     Indication: Product used for unknown indication
     Dosage: 1 DOSAGE FORM, QD
     Dates: start: 20240829

REACTIONS (3)
  - Faeces discoloured [Recovering/Resolving]
  - Chest discomfort [Recovering/Resolving]
  - Arthralgia [Recovering/Resolving]
